FAERS Safety Report 10207108 (Version 1)
Quarter: 2014Q2

REPORT INFORMATION
  Report Type: Spontaneous
  Country: US (occurrence: None)
  Receive Date: 20140528
  Receipt Date: 20140528
  Transmission Date: 20141212
  Serious: Yes (Hospitalization)
  Sender: FDA-Public Use
  Company Number: None

PATIENT
  Age: 64 Year
  Sex: Female

DRUGS (4)
  1. AZILECT [Suspect]
     Indication: PARKINSON^S DISEASE
     Dosage: 1 TAB DAILY
     Route: 048
     Dates: start: 20131120, end: 20131223
  2. CARBIDOPA/LEVODOPA [Concomitant]
  3. PRAMIPEXOLE [Concomitant]
  4. BENADRYL [Concomitant]

REACTIONS (3)
  - Heart rate irregular [None]
  - Dyspnoea [None]
  - Heart rate increased [None]
